FAERS Safety Report 15590974 (Version 1)
Quarter: 2018Q4

REPORT INFORMATION
  Report Type: Spontaneous
  Country: US (occurrence: US)
  Receive Date: 20181106
  Receipt Date: 20181106
  Transmission Date: 20190205
  Serious: No
  Sender: FDA-Public Use
  Company Number: US-SUNOVION-2018SUN004304

PATIENT
  Age: 57 Year
  Sex: Male

DRUGS (2)
  1. THORAZINE [Concomitant]
     Active Substance: CHLORPROMAZINE
     Dosage: 50 MG, QD (POSSIBLY)
     Route: 048
  2. LATUDA [Suspect]
     Active Substance: LURASIDONE HYDROCHLORIDE
     Indication: DEPRESSION
     Dosage: 80 MG, UNK
     Route: 048

REACTIONS (4)
  - Sleep deficit [Unknown]
  - Insomnia [Unknown]
  - Off label use [Unknown]
  - Psychotic disorder [Unknown]
